FAERS Safety Report 4706999-8 (Version None)
Quarter: 2005Q3

REPORT INFORMATION
  Report Type: 
  Country: None (occurrence: None)
  Receive Date: 20050706
  Receipt Date: 20050629
  Transmission Date: 20060218
  Serious: Yes (Other)
  Sender: FDA-Public Use
  Company Number: US-BRISTOL-MYERS SQUIBB COMPANY-13020805

PATIENT
  Age: 60 Year
  Sex: Male

DRUGS (1)
  1. ERBITUX [Suspect]
     Dosage: 3RD TREATMENT.  LOADING DOSE (400 MG/M2) GIVEN ON 19-APR-2005.
     Route: 042
     Dates: start: 20050429, end: 20050429

REACTIONS (2)
  - DERMATITIS ACNEIFORM [None]
  - NECROSIS [None]
